FAERS Safety Report 5852284-0 (Version None)
Quarter: 2008Q3

REPORT INFORMATION
  Report Type: 
  Country: None (occurrence: None)
  Receive Date: 20080821
  Receipt Date: 20080814
  Transmission Date: 20090109
  Serious: Yes (Hospitalization)
  Sender: FDA-Public Use
  Company Number: CA-AMGEN-KDL295048

PATIENT
  Sex: Female
  Weight: 86.3 kg

DRUGS (18)
  1. ENBREL [Suspect]
     Indication: RHEUMATOID ARTHRITIS
     Route: 058
     Dates: start: 20030101, end: 20080328
  2. METHOTREXATE SODIUM [Suspect]
     Dates: start: 19961201, end: 20080301
  3. PREDNISONE TAB [Suspect]
     Dates: start: 19960101
  4. LIPITOR [Concomitant]
  5. ELTROXIN [Concomitant]
  6. FOSAMAX [Concomitant]
  7. AMITRIPTYLINE HCL [Concomitant]
  8. CALCIUM [Concomitant]
  9. VITAMIN D [Concomitant]
  10. FOLIC ACID [Concomitant]
  11. TYLENOL W/ CODEINE NO. 3 [Concomitant]
  12. ACETAMINOPHEN [Concomitant]
  13. LOVAZA [Concomitant]
  14. LEVOXINE [Concomitant]
  15. QUININE SULFATE [Concomitant]
  16. TRIAMIZIDE [Concomitant]
  17. UNSPECIFIED MEDICATION [Concomitant]
  18. CELEBREX [Concomitant]
     Dates: end: 20060401

REACTIONS (9)
  - CARDIAC FAILURE CONGESTIVE [None]
  - DEHYDRATION [None]
  - EXOSTOSIS [None]
  - HALLUCINATION [None]
  - INCISIONAL DRAINAGE [None]
  - MENINGITIS BACTERIAL [None]
  - PNEUMONIA [None]
  - RENAL FAILURE [None]
  - SEPSIS [None]
